FAERS Safety Report 22967262 (Version 2)
Quarter: 2023Q4

REPORT INFORMATION
  Report Type: Spontaneous
  Country: US (occurrence: US)
  Receive Date: 20230921
  Receipt Date: 20231004
  Transmission Date: 20240109
  Serious: No
  Sender: FDA-Public Use
  Company Number: US-JNJFOC-20230947363

PATIENT
  Age: 40 Year
  Sex: Male
  Weight: 181.6 kg

DRUGS (1)
  1. REMICADE [Suspect]
     Active Substance: INFLIXIMAB
     Indication: Psoriasis
     Dosage: 100.00 MG
     Route: 041

REACTIONS (1)
  - Drug ineffective [Unknown]
